FAERS Safety Report 5119419-9 (Version None)
Quarter: 2006Q3

REPORT INFORMATION
  Report Type: 
  Country: None (occurrence: None)
  Receive Date: 20060929
  Receipt Date: 20060913
  Transmission Date: 20061208
  Serious: Yes (Other)
  Sender: FDA-Public Use
  Company Number: DSA_28700_2006

PATIENT
  Sex: Male

DRUGS (10)
  1. ENALAPRIL MALEATE [Suspect]
     Dosage: DF
  2. VYTORIN [Concomitant]
  3. DIGOXIN [Concomitant]
  4. INSPRA [Concomitant]
  5. COREG [Concomitant]
  6. FUROSEMIDE [Concomitant]
  7. POTASSIUM CHLORIDE [Concomitant]
  8. METFORMIN HCL [Concomitant]
  9. ASPIRIN [Concomitant]
  10. IBUPROFEN [Concomitant]

REACTIONS (2)
  - MYOCARDIAL INFARCTION [None]
  - VIRAL INFECTION [None]
